FAERS Safety Report 6554198-X (Version None)
Quarter: 2010Q1

REPORT INFORMATION
  Report Type: 
  Country: None (occurrence: None)
  Receive Date: 20100127
  Receipt Date: 20100114
  Transmission Date: 20100710
  Serious: Yes (Disabling)
  Sender: FDA-Public Use
  Company Number: GB-WATSON-2010-00569

PATIENT

DRUGS (4)
  1. SIMVASTATIN (WATSON LABORATORIES) [Suspect]
     Indication: HYPERCHOLESTEROLAEMIA
     Dosage: 40 MG, DAILY
     Route: 048
     Dates: start: 20070101
  2. LIPITOR [Suspect]
     Indication: HYPERCHOLESTEROLAEMIA
     Dosage: UNK
  3. ALFUZOSIN HCL [Concomitant]
     Indication: PROSTATIC DISORDER
     Dosage: 10 MG, DAILY
     Route: 048
     Dates: start: 20050101
  4. FINASTERIDE [Concomitant]
     Indication: PROSTATIC DISORDER
     Dosage: 5 MG, DAILY
     Route: 048
     Dates: start: 20060101

REACTIONS (4)
  - AMNESIA [None]
  - DEMENTIA ALZHEIMER'S TYPE [None]
  - MEMORY IMPAIRMENT [None]
  - MENTAL IMPAIRMENT [None]
